FAERS Safety Report 20390830 (Version 5)
Quarter: 2023Q2

REPORT INFORMATION
  Report Type: Report from Study
  Country: JP (occurrence: JP)
  Receive Date: 20220128
  Receipt Date: 20230505
  Transmission Date: 20230722
  Serious: Yes (Life-Threatening, Other)
  Sender: FDA-Public Use
  Company Number: JP-GSKJP-JP2021JPN245786AA

PATIENT

DRUGS (19)
  1. BELIMUMAB [Suspect]
     Active Substance: BELIMUMAB
     Indication: Systemic lupus erythematosus
     Dosage: 200 MG, WE
     Route: 058
     Dates: start: 20210510, end: 20210607
  2. BELIMUMAB [Suspect]
     Active Substance: BELIMUMAB
     Indication: Lupus nephritis
     Dosage: 200 MG, WE
     Route: 058
     Dates: start: 20210614, end: 20210719
  3. PREDONINE [Concomitant]
     Active Substance: PREDNISOLONE
     Indication: Systemic lupus erythematosus
     Dosage: 6 MG, 1D
     Route: 048
     Dates: start: 20210510
  4. PROGRAF [Concomitant]
     Active Substance: TACROLIMUS
     Indication: Systemic lupus erythematosus
  5. CELLCEPT [Concomitant]
     Active Substance: MYCOPHENOLATE MOFETIL
     Indication: Systemic lupus erythematosus
  6. MOSAPRIDE CITRATE [Concomitant]
     Active Substance: MOSAPRIDE CITRATE
     Indication: Gastrointestinal disorder
     Dosage: 5 MG, TID
     Dates: start: 20211025
  7. VONOPRAZAN FUMARATE [Concomitant]
     Active Substance: VONOPRAZAN FUMARATE
     Indication: Gastritis prophylaxis
  8. PERSANTIN TABLETS [Concomitant]
     Indication: Systemic lupus erythematosus
  9. CELECOX TABLETS [Concomitant]
  10. EDIROL CAPSULE [Concomitant]
     Indication: Osteoporosis prophylaxis
  11. LIPITOR TABLETS [Concomitant]
  12. TRAMAL OD TABLETS [Concomitant]
  13. PURSENNID TABLETS [Concomitant]
  14. LOXOPROFEN SODIUM DIHYDRATE [Concomitant]
     Active Substance: LOXOPROFEN SODIUM DIHYDRATE
  15. NAUZELIN TABLETS [Concomitant]
     Indication: Gastrointestinal disorder
  16. BISOPROLOL FUMARATE TABLET [Concomitant]
  17. BIOFERMIN TABLETS (BIFIDOBACTERIUM BIFIDUM) [Concomitant]
  18. LOXOPROFEN SODIUM [Concomitant]
     Active Substance: LOXOPROFEN SODIUM
  19. MUCOSTA TABLETS [Concomitant]
     Indication: Gastritis prophylaxis

REACTIONS (2)
  - Depression [Recovered/Resolved]
  - Suicidal ideation [Recovered/Resolved]

NARRATIVE: CASE EVENT DATE: 20210719
